FAERS Safety Report 8180082-4 (Version None)
Quarter: 2012Q1

REPORT INFORMATION
  Report Type: 
  Country: None (occurrence: None)
  Receive Date: 20120302
  Receipt Date: 20120302
  Transmission Date: 20120608
  Serious: Yes (Hospitalization, Other)
  Sender: FDA-Public Use
  Company Number: None

PATIENT
  Age: 49 Year
  Sex: Female
  Weight: 65.77 kg

DRUGS (1)
  1. LOVASTATIN [Suspect]
     Indication: BLOOD CHOLESTEROL INCREASED
     Dosage: 1 TABLET
     Route: 048
     Dates: start: 20111125, end: 20111222

REACTIONS (5)
  - PAIN [None]
  - MYALGIA [None]
  - ASTHENIA [None]
  - MUSCLE ATROPHY [None]
  - INFLUENZA LIKE ILLNESS [None]
